FAERS Safety Report 10504961 (Version 1)
Quarter: 2014Q3

REPORT INFORMATION
  Report Type: Spontaneous
  Country: US (occurrence: None)
  Receive Date: 20140929
  Receipt Date: 20140929
  Transmission Date: 20150326
  Serious: Yes (Hospitalization)
  Sender: FDA-Public Use
  Company Number: US-2014-11646

PATIENT
  Age: 20 Year
  Sex: Female

DRUGS (3)
  1. ABILIFY [Concomitant]
     Active Substance: ARIPIPRAZOLE
  2. AMANTADINE [Concomitant]
     Active Substance: AMANTADINE
  3. ABILIFY [Suspect]
     Active Substance: ARIPIPRAZOLE
     Indication: SCHIZOPHRENIA
     Route: 030
     Dates: start: 20140408

REACTIONS (4)
  - Social avoidant behaviour [None]
  - Hallucination, auditory [None]
  - Aggression [None]
  - Schizophrenia [None]

NARRATIVE: CASE EVENT DATE: 20140530
